FAERS Safety Report 8339810 (Version 3)
Quarter: 2012Q4

REPORT INFORMATION
  Report Type: 
  Country: IT (occurrence: IT)
  Receive Date: 20120117
  Receipt Date: 20121004
  Transmission Date: 20130627
  Serious: Yes (Hospitalization)
  Sender: FDA-Public Use
  Company Number: IT-PFIZER INC-2012008080

PATIENT
  Age: 86 Year
  Sex: Female

DRUGS (7)
  1. TAZOCIN [Suspect]
     Indication: PNEUMONIA
     Dosage: 3 DF, daily
     Route: 042
     Dates: start: 20110601, end: 20110611
  2. TAVANIC [Suspect]
     Indication: PNEUMONIA
     Dosage: 1 DF, daily
     Route: 042
     Dates: start: 20110604, end: 20110611
  3. CARDIOASPIRIN [Concomitant]
  4. REMERON [Concomitant]
  5. PANTORC [Concomitant]
  6. MOTILIUM ^JANSSEN-CILAG^ [Concomitant]
  7. HEPARIN-FRACTION, SODIUM SALT [Concomitant]

REACTIONS (2)
  - Clostridium difficile colitis [Recovered/Resolved]
  - Pseudomembranous colitis [Recovered/Resolved]
